FAERS Safety Report 7919511-7 (Version None)
Quarter: 2011Q4

REPORT INFORMATION
  Report Type: 
  Country: None (occurrence: None)
  Receive Date: 20111116
  Receipt Date: 20111116
  Transmission Date: 20120403
  Serious: Yes (Death)
  Sender: FDA-Public Use
  Company Number: None

PATIENT
  Age: 62 Year
  Sex: Male

DRUGS (2)
  1. PROCRIT [Suspect]
     Dosage: 20,000 UNITS ONCE WEEKLY SQ
     Route: 058
     Dates: start: 20110919, end: 20111019
  2. INCIVEK [Suspect]
     Dosage: 750MG TID PO
     Route: 048
     Dates: start: 20110809, end: 20111019

REACTIONS (2)
  - GASTROINTESTINAL HAEMORRHAGE [None]
  - PULMONARY HAEMORRHAGE [None]
